FAERS Safety Report 9707913 (Version 1)
Quarter: 2013Q4

REPORT INFORMATION
  Report Type: Spontaneous
  Country: US (occurrence: US)
  Receive Date: 20131125
  Receipt Date: 20131125
  Transmission Date: 20140711
  Serious: No
  Sender: FDA-Public Use
  Company Number: US-TEVA-378404USA

PATIENT
  Age: 28 Year
  Sex: Female
  Weight: 53.57 kg

DRUGS (2)
  1. PARAGARD 380A [Suspect]
     Indication: CONTRACEPTION
     Route: 015
     Dates: start: 20121206, end: 20121211
  2. CELEXA [Concomitant]
     Indication: ANXIETY

REACTIONS (1)
  - Device expulsion [Recovered/Resolved]
